FAERS Safety Report 5720684-5 (Version None)
Quarter: 2008Q2

REPORT INFORMATION
  Report Type: 
  Country: None (occurrence: None)
  Receive Date: 20080424
  Receipt Date: 20080414
  Transmission Date: 20081010
  Serious: Yes (Hospitalization)
  Sender: FDA-Public Use
  Company Number: 026717

PATIENT
  Age: 60 Year
  Sex: Male

DRUGS (3)
  1. PYRIDOSTIGMINE BROMIDE(PYRIDOSTIGMINE BROMIDE) TABLET, 60MG [Suspect]
     Indication: MYASTHENIA GRAVIS
     Dosage: 60MG, QID
  2. PREDNISONE TAB [Concomitant]
  3. AZATHIOPRINE [Concomitant]

REACTIONS (8)
  - ATRIOVENTRICULAR BLOCK [None]
  - ATRIOVENTRICULAR BLOCK COMPLETE [None]
  - ATRIOVENTRICULAR BLOCK SECOND DEGREE [None]
  - FATIGUE [None]
  - MYASTHENIA GRAVIS CRISIS [None]
  - RESPIRATORY DISTRESS [None]
  - SYNCOPE [None]
  - VENTRICULAR ASYSTOLE [None]
